FAERS Safety Report 25171086 (Version 2)
Quarter: 2025Q2

REPORT INFORMATION
  Report Type: Report from Study
  Country: CA (occurrence: CA)
  Receive Date: 20250408
  Receipt Date: 20250516
  Transmission Date: 20250716
  Serious: Yes (Hospitalization, Other)
  Sender: ABBVIE
  Company Number: CA-ABBVIE-6208509

PATIENT
  Age: 57 Year
  Sex: Female

DRUGS (3)
  1. RINVOQ [Suspect]
     Active Substance: UPADACITINIB
     Indication: Dermatitis atopic
     Dosage: FORM STRENGTH: 15 MILLIGRAMS
     Route: 048
     Dates: end: 20250325
  2. RINVOQ [Suspect]
     Active Substance: UPADACITINIB
     Indication: Dermatitis atopic
     Route: 048
  3. ACYCLOVIR [Suspect]
     Active Substance: ACYCLOVIR
     Indication: Immunisation
     Route: 065
     Dates: start: 20250314

REACTIONS (10)
  - Hip fracture [Not Recovered/Not Resolved]
  - Pyrexia [Recovered/Resolved]
  - Delirium [Not Recovered/Not Resolved]
  - Delusional disorder, unspecified type [Unknown]
  - Confusional state [Not Recovered/Not Resolved]
  - Herpes zoster [Recovered/Resolved]
  - Meningitis viral [Unknown]
  - Amnesia [Unknown]
  - Cognitive disorder [Unknown]
  - Fall [Unknown]

NARRATIVE: CASE EVENT DATE: 20250101
